FAERS Safety Report 7295168-6 (Version None)
Quarter: 2011Q1

REPORT INFORMATION
  Report Type: 
  Country: None (occurrence: None)
  Receive Date: 20110216
  Receipt Date: 20101116
  Transmission Date: 20110831
  Serious: No
  Sender: FDA-Public Use
  Company Number: A0878821A

PATIENT
  Age: 82 Year
  Sex: Male
  Weight: 68.2 kg

DRUGS (3)
  1. ALPRAZOLAM [Concomitant]
  2. BUPROPION HCL [Concomitant]
  3. VOTRIENT [Suspect]
     Dosage: 800MG PER DAY
     Route: 065
     Dates: start: 20100804

REACTIONS (5)
  - DECREASED APPETITE [None]
  - FATIGUE [None]
  - WEIGHT DECREASED [None]
  - HYPERTENSION [None]
  - THERAPY REGIMEN CHANGED [None]
